FAERS Safety Report 12327664 (Version 1)
Quarter: 2016Q2

REPORT INFORMATION
  Report Type: Spontaneous
  Country: US (occurrence: US)
  Receive Date: 20160503
  Receipt Date: 20160503
  Transmission Date: 20160815
  Serious: No
  Sender: FDA-Public Use
  Company Number: US-PFIZER INC-2016203013

PATIENT
  Age: 51 Year
  Sex: Female

DRUGS (3)
  1. MANNITOL. [Suspect]
     Active Substance: MANNITOL
     Dosage: UNK
  2. SOMAVERT [Suspect]
     Active Substance: PEGVISOMANT
     Dosage: 15 MG, DAILY
     Route: 058
  3. SOMAVERT [Suspect]
     Active Substance: PEGVISOMANT
     Dosage: 20 MG, DAILY
     Route: 058

REACTIONS (3)
  - Dehydration [Unknown]
  - Nocturia [Unknown]
  - Reaction to drug excipients [Unknown]
